FAERS Safety Report 22339960 (Version 1)
Quarter: 2023Q2

REPORT INFORMATION
  Report Type: Spontaneous
  Country: US (occurrence: None)
  Receive Date: 20230518
  Receipt Date: 20230518
  Transmission Date: 20230722
  Serious: Yes (Other)
  Sender: FDA-Public Use
  Company Number: None

PATIENT
  Age: 65 Year
  Sex: Male

DRUGS (1)
  1. SILDENAFIL [Suspect]
     Active Substance: SILDENAFIL
     Indication: Erectile dysfunction
     Dosage: 1 MG DAILY ORAL
     Route: 048
     Dates: start: 20230515, end: 20230516

REACTIONS (2)
  - Headache [None]
  - Visual impairment [None]

NARRATIVE: CASE EVENT DATE: 20230515
